FAERS Safety Report 4595075-3 (Version None)
Quarter: 2005Q1

REPORT INFORMATION
  Report Type: 
  Country: None (occurrence: None)
  Receive Date: 20050223
  Receipt Date: 20050124
  Transmission Date: 20050727
  Serious: Yes (Hospitalization)
  Sender: FDA-Public Use
  Company Number: 2005-BP-01255YA

PATIENT
  Age: 77 Year
  Sex: Male

DRUGS (7)
  1. HARNAL                   (TAMSULOSIN) [Suspect]
     Indication: BENIGN PROSTATIC HYPERPLASIA
     Dosage: 0.2 MG (NR, 0.2 MG OD) PO
     Route: 048
  2. DEAMELIN S (GLYCLOPYRAMIDE) (NR) [Suspect]
     Dosage: PO
     Route: 048
  3. WARFARIN               (WARFARIN) (NR) [Concomitant]
  4. REBAMIPIDE           (REBAMIPIDE) [Concomitant]
  5. NISOLDIPINE (NISOLDIPINE) (NR) [Concomitant]
  6. CHLORMADINONE ACETATE TAB [Concomitant]
  7. MELOXICAM [Concomitant]

REACTIONS (2)
  - HYPOGLYCAEMIA [None]
  - LOSS OF CONSCIOUSNESS [None]
